FAERS Safety Report 5835478-X (Version None)
Quarter: 2008Q3

REPORT INFORMATION
  Report Type: 
  Country: None (occurrence: None)
  Receive Date: 20080804
  Receipt Date: 20080722
  Transmission Date: 20090109
  Serious: Yes (Hospitalization)
  Sender: FDA-Public Use
  Company Number: 8034981

PATIENT
  Sex: Male
  Weight: 110.68 kg

DRUGS (10)
  1. KEPPRA [Suspect]
  2. TEMOZOLOMIDE [Suspect]
     Indication: GLIOBLASTOMA MULTIFORME
     Dosage: 75 MG/M2/D/PO
     Route: 048
     Dates: start: 20071113
  3. TEMOZOLOMIDE [Suspect]
     Indication: GLIOBLASTOMA MULTIFORME
     Dosage: 75 MG/M2 PO
     Route: 048
     Dates: start: 20080318
  4. BEVACIZUMAB [Suspect]
     Indication: GLIOBLASTOMA MULTIFORME
     Dosage: 10 MG/KG IV
     Route: 042
  5. ASPIRIN [Suspect]
  6. LISINOPRIL [Suspect]
  7. TOPROL-XL [Suspect]
  8. DECADRON SRC [Concomitant]
  9. PROTONIX [Concomitant]
  10. SENNA [Concomitant]

REACTIONS (11)
  - ASTHENIA [None]
  - BLOOD CALCIUM DECREASED [None]
  - BLOOD GLUCOSE INCREASED [None]
  - BRADYCARDIA [None]
  - CONTUSION [None]
  - FATIGUE [None]
  - LYMPHOCYTE COUNT DECREASED [None]
  - MYOCARDIAL INFARCTION [None]
  - PLATELET COUNT DECREASED [None]
  - SPEECH DISORDER [None]
  - VISION BLURRED [None]
